FAERS Safety Report 16017262 (Version 3)
Quarter: 2019Q1

REPORT INFORMATION
  Report Type: Spontaneous
  Country: US (occurrence: US)
  Receive Date: 20190228
  Receipt Date: 20190307
  Transmission Date: 20190418
  Serious: Yes (Other)
  Sender: FDA-Public Use
  Company Number: US-PFIZER INC-2019090695

PATIENT
  Age: 80 Year
  Sex: Male
  Weight: 88.89 kg

DRUGS (2)
  1. FENTANYL CITRATE. [Suspect]
     Active Substance: FENTANYL CITRATE
     Indication: SEDATION
     Dosage: 150 UG, SINGLE (ADMINISTERED IV ONE TIME FOR PROCEDURE)
     Route: 042
     Dates: start: 20190122
  2. MIDAZOLAM [Suspect]
     Active Substance: MIDAZOLAM HYDROCHLORIDE
     Indication: SEDATION
     Dosage: 3 MG, (2MG FOR THE FIRST DOSE AND THEN 1MG FOR THE SECOND DOSE)
     Route: 042
     Dates: start: 20190222

REACTIONS (3)
  - Hyponatraemia [Unknown]
  - Oxygen saturation decreased [Unknown]
  - Respiratory disorder [Unknown]

NARRATIVE: CASE EVENT DATE: 20190122
